FAERS Safety Report 6759542-6 (Version None)
Quarter: 2010Q2

REPORT INFORMATION
  Report Type: 
  Country: None (occurrence: None)
  Receive Date: 20100604
  Receipt Date: 20100521
  Transmission Date: 20101027
  Serious: Yes (Hospitalization)
  Sender: FDA-Public Use
  Company Number: 012367

PATIENT
  Sex: Male
  Weight: 62.5 kg

DRUGS (5)
  1. LACOSAMIDE [Suspect]
     Indication: CONVULSION
     Dosage: (50 MG BID ORAL), 100 MG BID ORAL, (150 MG BID ORAL)
     Route: 048
     Dates: start: 20100401, end: 20100501
  2. LACOSAMIDE [Suspect]
     Indication: CONVULSION
     Dosage: (50 MG BID ORAL), 100 MG BID ORAL, (150 MG BID ORAL)
     Route: 048
     Dates: start: 20100501, end: 20100516
  3. LACOSAMIDE [Suspect]
     Indication: CONVULSION
     Dosage: (50 MG BID ORAL), 100 MG BID ORAL, (150 MG BID ORAL)
     Route: 048
     Dates: start: 20100516
  4. TRILEPTAL [Concomitant]
  5. TOPAMAX [Concomitant]

REACTIONS (2)
  - EYE ROLLING [None]
  - TREMOR [None]
